FAERS Safety Report 10101593 (Version 1)
Quarter: 2014Q2

REPORT INFORMATION
  Report Type: Spontaneous
  Country: US (occurrence: None)
  Receive Date: 20140422
  Receipt Date: 20140422
  Transmission Date: 20141212
  Serious: Yes (Death)
  Sender: FDA-Public Use
  Company Number: 2014P1003152

PATIENT
  Age: 10 Year
  Sex: Female

DRUGS (4)
  1. IRINOTECAN [Suspect]
     Indication: MEDULLOBLASTOMA
     Route: 048
  2. TEMOZOLOMIDE [Suspect]
     Indication: MEDULLOBLASTOMA
     Route: 048
  3. TEMSIROLIMUS [Suspect]
     Indication: MEDULLOBLASTOMA
     Route: 042
  4. CEFIXIME [Concomitant]

REACTIONS (3)
  - Nausea [None]
  - Vomiting [None]
  - Aspiration [None]
